FAERS Safety Report 22132603 (Version 1)
Quarter: 2023Q1

REPORT INFORMATION
  Report Type: Report from Study
  Country: US (occurrence: US)
  Receive Date: 20230323
  Receipt Date: 20230323
  Transmission Date: 20230418
  Serious: Yes (Hospitalization, Other)
  Sender: FDA-Public Use
  Company Number: US-BAUSCH-BL-2023-004676

PATIENT
  Age: 72 Year
  Sex: Female

DRUGS (1)
  1. XIFAXAN [Suspect]
     Active Substance: RIFAXIMIN
     Indication: Product used for unknown indication
     Route: 065
     Dates: start: 20180515

REACTIONS (8)
  - Chest pain [Unknown]
  - Depressed level of consciousness [Unknown]
  - Vascular occlusion [Unknown]
  - Confusional state [Unknown]
  - Dyspnoea [Unknown]
  - Blood glucose increased [Unknown]
  - Platelet count decreased [Unknown]
  - Hypertension [Unknown]

NARRATIVE: CASE EVENT DATE: 20230301
